FAERS Safety Report 25914105 (Version 2)
Quarter: 2025Q4

REPORT INFORMATION
  Report Type: Spontaneous
  Country: JP (occurrence: JP)
  Receive Date: 20251013
  Receipt Date: 20251027
  Transmission Date: 20260117
  Serious: Yes (Other)
  Sender: PFIZER
  Company Number: JP-PFIZER INC-202500200771

PATIENT
  Age: 81 Year
  Sex: Female

DRUGS (9)
  1. TAFAMIDIS [Suspect]
     Active Substance: TAFAMIDIS
     Indication: Cardiac amyloidosis
     Dosage: 61 MG, 1X/DAY, EVERY DAY
     Route: 048
     Dates: start: 20250709, end: 20250923
  2. ORYCTOLAGUS CUNICULUS SKIN [Concomitant]
     Active Substance: ORYCTOLAGUS CUNICULUS SKIN
     Dosage: 2 DF (2 TABLETS), 2X/DAY
  3. MIROGABALIN BESYLATE [Concomitant]
     Active Substance: MIROGABALIN BESYLATE
     Dosage: 5 MG (1 TABLET), 2X/DAY
  4. TRAMADOL HYDROCHLORIDE [Concomitant]
     Active Substance: TRAMADOL HYDROCHLORIDE
     Dosage: 25 MG (1 TABLET), 2X/DAY
  5. CANDESARTAN [Concomitant]
     Active Substance: CANDESARTAN
     Dosage: 4 MG (1 TABLET), 1X/DAY
  6. PREDNISOLONE [Concomitant]
     Active Substance: PREDNISOLONE
     Dosage: 1 MG (1 TABLET), 1X/DAY
  7. RISEDRONATE SODIUM [Concomitant]
     Active Substance: RISEDRONATE SODIUM
     Dosage: 75 MG (1 TABLET), WEEKLY
  8. FAMOTIDINE [Concomitant]
     Active Substance: FAMOTIDINE
     Dosage: 10 MG (1 TABLET), 1X/DAY, EVERY DAY
  9. COLCHICINE [Concomitant]
     Active Substance: COLCHICINE
     Dosage: 0.5 MG (1 TABLET), 1X/DAY

REACTIONS (1)
  - Renal impairment [Not Recovered/Not Resolved]
